FAERS Safety Report 15592597 (Version 1)
Quarter: 2018Q4

REPORT INFORMATION
  Report Type: Spontaneous
  Country: US (occurrence: US)
  Receive Date: 20181106
  Receipt Date: 20181106
  Transmission Date: 20190205
  Serious: No
  Sender: FDA-Public Use
  Company Number: US-ARALEZ PHARMACEUTICALS R+D INC.-2018-ARA-002530

PATIENT
  Sex: Female

DRUGS (25)
  1. CHOLECALCIFEROL [Concomitant]
     Active Substance: CHOLECALCIFEROL
  2. CRANBERRY                          /01512301/ [Concomitant]
     Active Substance: CRANBERRY
  3. PROAIR HFA [Concomitant]
     Active Substance: ALBUTEROL SULFATE
  4. AMLODIPINE [Concomitant]
     Active Substance: AMLODIPINE BESYLATE
  5. LORAZEPAM. [Concomitant]
     Active Substance: LORAZEPAM
  6. COENZYME Q10 [Concomitant]
     Active Substance: UBIDECARENONE
  7. LEVOTHYROXINE. [Concomitant]
     Active Substance: LEVOTHYROXINE
  8. PAREGORIC                          /00036301/ [Concomitant]
  9. PREMARIN [Concomitant]
     Active Substance: ESTROGENS, CONJUGATED
  10. DULOXETINE. [Concomitant]
     Active Substance: DULOXETINE
  11. SUPER B COMPLEX                    /01995301/ [Concomitant]
     Active Substance: CYANOCOBALAMIN\DEXPANTHENOL\NIACINAMIDE\PYRIDOXINE HYDROCHLORIDE\RIBOFLAVIN 5^-PHOSPHATE SODIUM\THIAMINE HYDROCHLORIDE\VITAMIN B COMPLEX
  12. FLUTICASONE. [Concomitant]
     Active Substance: FLUTICASONE
  13. OXYCODONE [Concomitant]
     Active Substance: OXYCODONE
  14. ONDANSETRON [Concomitant]
     Active Substance: ONDANSETRON
     Dosage: UNK
  15. METOPROLOL SUCCINATE. [Suspect]
     Active Substance: METOPROLOL SUCCINATE
     Indication: PRODUCT USED FOR UNKNOWN INDICATION
     Dosage: UNK
     Route: 065
  16. ACETAMINOFEN [Concomitant]
     Active Substance: ACETAMINOPHEN
  17. CLOBETASOL [Concomitant]
     Active Substance: CLOBETASOL
  18. IMODIUM [Concomitant]
     Active Substance: LOPERAMIDE HYDROCHLORIDE
  19. TAGRISSO [Suspect]
     Active Substance: OSIMERTINIB
     Indication: LUNG CARCINOMA CELL TYPE UNSPECIFIED RECURRENT
     Dosage: 80 MG, QD
     Route: 048
     Dates: start: 20180901
  20. LOMOTIL [Concomitant]
     Active Substance: ATROPINE SULFATE\DIPHENOXYLATE HYDROCHLORIDE
  21. LISINOPRIL. [Suspect]
     Active Substance: LISINOPRIL
     Indication: PRODUCT USED FOR UNKNOWN INDICATION
     Route: 065
  22. ASPIRIN                            /00002701/ [Concomitant]
     Active Substance: ASPIRIN
  23. PANTOPRAZOLE [Concomitant]
     Active Substance: PANTOPRAZOLE
  24. SIMVASTATIN. [Concomitant]
     Active Substance: SIMVASTATIN
  25. GABAPENTIN. [Concomitant]
     Active Substance: GABAPENTIN

REACTIONS (4)
  - Diarrhoea [Unknown]
  - Rhinorrhoea [Unknown]
  - Abdominal discomfort [Unknown]
  - Chest pain [Unknown]
